FAERS Safety Report 8242084 (Version 3)
Quarter: 2013Q1

REPORT INFORMATION
  Report Type: Spontaneous
  Country: US (occurrence: US)
  Receive Date: 20111112
  Receipt Date: 20130213
  Transmission Date: 20140127
  Serious: Yes (Hospitalization)
  Sender: FDA-Public Use
  Company Number: US-ASTRAZENECA-2011SE66664

PATIENT
  Age: 59 Year
  Sex: Female

DRUGS (3)
  1. SYMBICORT PMDI [Suspect]
     Route: 055
  2. NEXIUM [Suspect]
     Indication: GASTROOESOPHAGEAL REFLUX DISEASE
     Route: 048
  3. NEXIUM [Suspect]
     Indication: DYSPEPSIA
     Route: 048

REACTIONS (6)
  - Lower respiratory tract infection fungal [Unknown]
  - Asthma [Unknown]
  - Dyspnoea [Unknown]
  - Odynophagia [Unknown]
  - Throat irritation [Unknown]
  - Drug dose omission [Unknown]
